FAERS Safety Report 7825133-9 (Version None)
Quarter: 2011Q4

REPORT INFORMATION
  Report Type: 
  Country: None (occurrence: None)
  Receive Date: 20111019
  Receipt Date: 20111012
  Transmission Date: 20120403
  Serious: Yes (Hospitalization)
  Sender: FDA-Public Use
  Company Number: US-ELI_LILLY_AND_COMPANY-US201110003199

PATIENT
  Sex: Male
  Weight: 72 kg

DRUGS (4)
  1. NECITUMUMAB (11F8) (LY3012211) [Suspect]
     Indication: NON-SMALL CELL LUNG CANCER STAGE IV
     Dosage: 800 MG, EVERY 21 DAYS/CYCLE
     Route: 042
     Dates: start: 20110915, end: 20111012
  2. CISPLATIN [Suspect]
     Indication: NON-SMALL CELL LUNG CANCER STAGE IV
     Dosage: 142 MG, EVERY 21 DAYS/CYCLE
     Route: 042
     Dates: start: 20110906, end: 20111012
  3. GEMCITABINE HYDROCHLORIDE [Suspect]
     Indication: NON-SMALL CELL LUNG CANCER STAGE IV
     Dosage: 2375 MG, EVERY 21 DAYS/CYCLE
     Route: 042
     Dates: start: 20110906, end: 20111012
  4. LACTULOSE [Concomitant]
     Indication: CONSTIPATION
     Dosage: UNK, EVERY 6 HRS

REACTIONS (1)
  - RENAL FAILURE [None]
